FAERS Safety Report 9833532 (Version 1)
Quarter: 2014Q1

REPORT INFORMATION
  Report Type: Report from Study
  Country: AT (occurrence: AT)
  Receive Date: 20140122
  Receipt Date: 20140122
  Transmission Date: 20141002
  Serious: Yes (Death)
  Sender: FDA-Public Use
  Company Number: AT-ROCHE-1336802

PATIENT
  Age: 75 Year
  Sex: Female
  Weight: 70 kg

DRUGS (8)
  1. RITUXIMAB [Suspect]
     Indication: MANTLE CELL LYMPHOMA
     Route: 042
     Dates: start: 20001122
  2. RITUXIMAB [Suspect]
     Indication: LYMPHOMATOID PAPULOSIS
  3. ADRIBLASTIN [Concomitant]
     Route: 065
  4. ONCOVIN [Concomitant]
     Route: 065
  5. MEXALEN [Concomitant]
     Route: 048
  6. DIBONDRIN [Concomitant]
  7. LEUKERAN [Concomitant]
  8. SODIUM CHLORIDE [Concomitant]

REACTIONS (1)
  - Death [Fatal]
